FAERS Safety Report 8853138 (Version 6)
Quarter: 2013Q3

REPORT INFORMATION
  Report Type: Spontaneous
  Country: US (occurrence: US)
  Receive Date: 20121022
  Receipt Date: 20130903
  Transmission Date: 20140515
  Serious: Yes (Hospitalization, Other)
  Sender: FDA-Public Use
  Company Number: US-009507513-1201USA03060

PATIENT
  Sex: Female
  Weight: 92.63 kg

DRUGS (6)
  1. FOSAMAX [Suspect]
     Indication: OSTEOPOROSIS
     Dosage: 10 MG, QD
     Route: 048
     Dates: start: 199909, end: 200110
  2. FOSAMAX [Suspect]
     Dosage: 70 MG, QW
     Route: 048
     Dates: start: 200110, end: 200804
  3. FOSAMAX PLUS D [Suspect]
     Indication: OSTEOPOROSIS
     Dosage: 70 MG, QW
     Route: 048
     Dates: start: 2005, end: 2008
  4. FOSAMAX [Suspect]
     Indication: OSTEOPOROSIS
     Dosage: 70 MG, QW
     Route: 048
     Dates: start: 200804, end: 2009
  5. CALCIUM (UNSPECIFIED) [Concomitant]
     Indication: OSTEOPOROSIS
     Dosage: 1200 MG, QD
     Dates: start: 2003
  6. GLUCOPHAGE [Concomitant]
     Indication: TYPE 2 DIABETES MELLITUS
     Dosage: 600 MG, BID

REACTIONS (48)
  - Femoral neck fracture [Unknown]
  - Open reduction of fracture [Unknown]
  - Osteonecrosis [Unknown]
  - Femur fracture [Unknown]
  - Hip arthroplasty [Unknown]
  - Fall [Unknown]
  - Knee arthroplasty [Unknown]
  - Gastric bypass [Unknown]
  - Arthroscopy [Unknown]
  - Toe operation [Unknown]
  - Cholecystectomy [Unknown]
  - Gastrectomy [Unknown]
  - Renal failure chronic [Not Recovered/Not Resolved]
  - Hip surgery [Unknown]
  - Plastic surgery [Unknown]
  - Foot fracture [Unknown]
  - Ankle fracture [Unknown]
  - Dental implantation [Unknown]
  - Nephrolithiasis [Unknown]
  - Osteoarthritis [Unknown]
  - Hypertension [Unknown]
  - Hypercholesterolaemia [Unknown]
  - Osteopenia [Unknown]
  - Thermal burn [Unknown]
  - Osteoarthritis [Unknown]
  - Diabetic neuropathy [Unknown]
  - Anaemia postoperative [Unknown]
  - Spinal osteoarthritis [Unknown]
  - Exostosis [Unknown]
  - Osteoarthritis [Unknown]
  - Pernicious anaemia [Unknown]
  - Diabetic nephropathy [Unknown]
  - Autonomic neuropathy [Unknown]
  - Anxiety disorder [Unknown]
  - Contusion [Unknown]
  - Synovial cyst [Unknown]
  - Large intestine polyp [Unknown]
  - Vitamin D deficiency [Unknown]
  - Osteoarthritis [Unknown]
  - Foot operation [Unknown]
  - Asthma [Unknown]
  - Intraocular lens implant [Unknown]
  - Cholecystitis [Unknown]
  - Diverticulitis [Unknown]
  - Anaemia [Unknown]
  - Constipation [Unknown]
  - Oedema peripheral [Unknown]
  - Gastrooesophageal reflux disease [Unknown]
